FAERS Safety Report 7999536 (Version 2)
Quarter: 2017Q2

REPORT INFORMATION
  Report Type: Spontaneous
  Country: NO (occurrence: NO)
  Receive Date: 20110621
  Receipt Date: 20170405
  Transmission Date: 20170830
  Serious: Yes (Disabling, Other)
  Sender: FDA-Public Use
  Company Number: NO-ASTRAZENECA-2011SE36173

PATIENT
  Age: 46 Year
  Sex: Female
  Weight: 70 kg

DRUGS (21)
  1. ABILIFY [Suspect]
     Active Substance: ARIPIPRAZOLE
     Indication: PSYCHOTIC DISORDER
     Route: 048
     Dates: start: 201210
  2. RISPERDAL [Suspect]
     Active Substance: RISPERIDONE
     Indication: SCHIZOPHRENIA
     Route: 065
     Dates: start: 20030530, end: 20030721
  3. TRILAFON [Suspect]
     Active Substance: PERPHENAZINE
     Indication: SCHIZOPHRENIA
     Dosage: 10.0MG UNKNOWN
     Route: 048
     Dates: start: 199007
  4. SEROQUEL [Suspect]
     Active Substance: QUETIAPINE FUMARATE
     Indication: PSYCHOTIC DISORDER
     Route: 048
     Dates: start: 200307
  5. SEROQUEL [Suspect]
     Active Substance: QUETIAPINE FUMARATE
     Indication: PSYCHOTIC DISORDER
     Route: 048
     Dates: start: 2003
  6. RISPERDAL [Suspect]
     Active Substance: RISPERIDONE
     Indication: SCHIZOPHRENIA
     Route: 065
     Dates: start: 20030530, end: 20030721
  7. TRILAFON [Suspect]
     Active Substance: PERPHENAZINE
     Indication: DELUSION
     Dosage: 108.0MG UNKNOWN
     Route: 065
  8. RISPERDAL [Suspect]
     Active Substance: RISPERIDONE
     Indication: PSYCHOTIC DISORDER
     Route: 065
     Dates: start: 20030530, end: 20030721
  9. TRILAFON [Suspect]
     Active Substance: PERPHENAZINE
     Indication: SCHIZOPHRENIA
     Dosage: 12.0MG UNKNOWN
     Route: 048
     Dates: start: 1993, end: 1994
  10. SEROQUEL [Suspect]
     Active Substance: QUETIAPINE FUMARATE
     Indication: SCHIZOPHRENIA
     Route: 048
     Dates: start: 2003
  11. TRILAFON [Suspect]
     Active Substance: PERPHENAZINE
     Indication: SCHIZOPHRENIA
     Dosage: 108.0MG UNKNOWN
     Route: 065
  12. RISPERDAL [Suspect]
     Active Substance: RISPERIDONE
     Indication: PSYCHOTIC DISORDER
     Route: 065
     Dates: start: 199403
  13. CISORDINOL [Suspect]
     Active Substance: ZUCLOPENTHIXOL
     Indication: SCHIZOPHRENIA
     Dosage: 6.0MG UNKNOWN
     Route: 065
     Dates: start: 1994
  14. TRILAFON [Suspect]
     Active Substance: PERPHENAZINE
     Indication: DELUSION
     Dosage: 10.0MG UNKNOWN
     Route: 048
     Dates: start: 199007
  15. SOBRIL [Concomitant]
     Active Substance: OXAZEPAM
     Indication: RESTLESSNESS
     Dates: start: 1995, end: 2016
  16. RISPERDAL [Suspect]
     Active Substance: RISPERIDONE
     Indication: PSYCHOTIC DISORDER
     Route: 065
     Dates: start: 20030530, end: 20030721
  17. RISPERDAL [Suspect]
     Active Substance: RISPERIDONE
     Indication: SCHIZOPHRENIA
     Route: 065
     Dates: start: 199403
  18. TRILAFON [Suspect]
     Active Substance: PERPHENAZINE
     Indication: DELUSION
     Dosage: 12.0MG UNKNOWN
     Route: 048
     Dates: start: 1993, end: 1994
  19. SEROQUEL [Suspect]
     Active Substance: QUETIAPINE FUMARATE
     Indication: SCHIZOPHRENIA
     Route: 048
     Dates: start: 200307
  20. METFORMIN [Suspect]
     Active Substance: METFORMIN HYDROCHLORIDE
     Indication: DIABETES MELLITUS
     Route: 048
     Dates: start: 200312
  21. AMARYL [Concomitant]
     Active Substance: GLIMEPIRIDE
     Indication: BLOOD GLUCOSE INCREASED
     Dates: start: 1995, end: 2016

REACTIONS (23)
  - Blood cholesterol increased [Unknown]
  - Latent autoimmune diabetes in adults [Unknown]
  - Visual impairment [Recovered/Resolved with Sequelae]
  - Disability [Recovered/Resolved with Sequelae]
  - Anxiety [Unknown]
  - Diabetes mellitus [Unknown]
  - Asthenia [Unknown]
  - Dyskinesia [Recovering/Resolving]
  - Discomfort [Recovered/Resolved with Sequelae]
  - Temporomandibular joint syndrome [Unknown]
  - Tardive dyskinesia [Recovered/Resolved with Sequelae]
  - Tongue movement disturbance [Recovered/Resolved with Sequelae]
  - Fatigue [Recovered/Resolved with Sequelae]
  - Therapeutic product ineffective [Unknown]
  - Tension [Recovering/Resolving]
  - Listless [Recovered/Resolved with Sequelae]
  - Parkinsonism [Unknown]
  - Restlessness [Recovered/Resolved with Sequelae]
  - Blood prolactin increased [Recovered/Resolved]
  - Intentional product misuse [Unknown]
  - Migraine with aura [Recovered/Resolved with Sequelae]
  - Diarrhoea [Recovered/Resolved]
  - Malaise [Unknown]

NARRATIVE: CASE EVENT DATE: 2003
